FAERS Safety Report 24112732 (Version 2)
Quarter: 2024Q3

REPORT INFORMATION
  Report Type: Spontaneous
  Country: US (occurrence: US)
  Receive Date: 20240719
  Receipt Date: 20240812
  Transmission Date: 20241017
  Serious: No
  Sender: MYLAN
  Company Number: US-MYLANLABS-2024M1065131

PATIENT
  Sex: Female

DRUGS (1)
  1. TYRVAYA [Suspect]
     Active Substance: VARENICLINE TARTRATE
     Indication: Dry eye
     Dosage: UNK
     Route: 045
     Dates: start: 20230901

REACTIONS (4)
  - Nasal mucosal blistering [Recovered/Resolved]
  - Nasal discomfort [Recovered/Resolved]
  - Nasal ulcer [Recovered/Resolved]
  - Rhinalgia [Recovered/Resolved]
